FAERS Safety Report 5497582-8 (Version None)
Quarter: 2007Q4

REPORT INFORMATION
  Report Type: 
  Country: None (occurrence: None)
  Receive Date: 20071025
  Receipt Date: 20070131
  Transmission Date: 20080405
  Serious: No
  Sender: FDA-Public Use
  Company Number: A0631318A

PATIENT
  Age: 90 Year
  Sex: Female

DRUGS (7)
  1. ADVAIR DISKUS 100/50 [Suspect]
     Indication: CHRONIC OBSTRUCTIVE PULMONARY DISEASE
     Route: 055
     Dates: start: 20030101
  2. COMBIVENT [Concomitant]
  3. POTASSIUM CHLORIDE [Concomitant]
  4. COREG [Concomitant]
  5. DIURETIC [Concomitant]
  6. ZOCOR [Concomitant]
  7. COZAAR [Concomitant]

REACTIONS (3)
  - COUGH [None]
  - DYSPNOEA [None]
  - LIP SWELLING [None]
